FAERS Safety Report 18600034 (Version 2)
Quarter: 2024Q1

REPORT INFORMATION
  Report Type: Spontaneous
  Country: US (occurrence: US)
  Receive Date: 20201210
  Receipt Date: 20240119
  Transmission Date: 20240409
  Serious: Yes (Other)
  Sender: FDA-Public Use
  Company Number: US-MYLANLABS-2020M1101986

PATIENT
  Age: 37 Year
  Sex: Female

DRUGS (12)
  1. VERAPAMIL [Suspect]
     Active Substance: VERAPAMIL HYDROCHLORIDE
     Indication: Insulinoma
     Dosage: 80 MILLIGRAM, TID, THREE TIMES A DAY
     Route: 065
  2. OCTREOTIDE [Suspect]
     Active Substance: OCTREOTIDE\OCTREOTIDE ACETATE
     Indication: Insulinoma
     Dosage: 50 MICROGRAM, BID
     Route: 058
  3. PREDNISONE [Suspect]
     Active Substance: PREDNISONE
     Indication: Insulinoma
     Dosage: 7.5 MILLIGRAM, TOTAL, 5MG EVERY MORNING AND 2.5MG IN THE AFTERNOON
     Route: 065
  4. PREDNISONE [Suspect]
     Active Substance: PREDNISONE
     Dosage: 5 MILLIGRAM, EVERY MORNING (DECREASED ON THE PATIENT^S REQUEST)
     Route: 065
  5. PREDNISONE [Suspect]
     Active Substance: PREDNISONE
     Dosage: 2.5 MILLIGRAM, PATIENT DECREASED OWN PREDNISONE DOSE
     Route: 065
  6. PREDNISONE [Suspect]
     Active Substance: PREDNISONE
     Dosage: 5 MILLIGRAM, QD, ON HER REQUEST DOSE DECREASED
     Route: 065
  7. PREDNISONE [Suspect]
     Active Substance: PREDNISONE
     Dosage: 2.5 MILLIGRAM, QD, DOSE DECREASED
     Route: 065
  8. DIAZOXIDE [Suspect]
     Active Substance: DIAZOXIDE
     Indication: Insulinoma
     Dosage: 50 MILLIGRAM, TID, THREE TIMES A DAY
     Route: 065
  9. DIAZOXIDE [Suspect]
     Active Substance: DIAZOXIDE
     Dosage: 150 MILLIGRAM, BID
     Route: 065
  10. DIAZOXIDE [Suspect]
     Active Substance: DIAZOXIDE
     Dosage: 100 MILLIGRAM, BID
     Route: 065
  11. DIAZOXIDE [Suspect]
     Active Substance: DIAZOXIDE
     Dosage: UNK, RECEIVED LOW DOSE
     Route: 065
  12. HYDROCHLOROTHIAZIDE [Concomitant]
     Active Substance: HYDROCHLOROTHIAZIDE
     Indication: Fluid retention
     Dosage: 25 MILLIGRAM, QD
     Route: 065

REACTIONS (3)
  - Drug ineffective [Unknown]
  - Off label use [Unknown]
  - Intentional product misuse [Unknown]
